FAERS Safety Report 7151985-4 (Version None)
Quarter: 2010Q4

REPORT INFORMATION
  Report Type: 
  Country: None (occurrence: None)
  Receive Date: 20101211
  Receipt Date: 20101201
  Transmission Date: 20110411
  Serious: Yes (Other)
  Sender: FDA-Public Use
  Company Number: US-PFIZER INC-2010162139

PATIENT
  Sex: Male
  Weight: 83.9 kg

DRUGS (4)
  1. LYRICA [Suspect]
     Indication: PARAESTHESIA
     Dosage: 75 MG, 2X/DAY
     Route: 048
     Dates: start: 20101125, end: 20101129
  2. LYRICA [Suspect]
     Indication: MUSCULOSKELETAL STIFFNESS
  3. LYRICA [Suspect]
     Indication: MUSCULAR WEAKNESS
  4. LYRICA [Suspect]
     Indication: HYPOAESTHESIA

REACTIONS (4)
  - BLISTER [None]
  - ERYTHEMA [None]
  - RASH [None]
  - RASH PRURITIC [None]
